FAERS Safety Report 19661324 (Version 1)
Quarter: 2021Q3

REPORT INFORMATION
  Report Type: Spontaneous
  Country: CN (occurrence: CN)
  Receive Date: 20210805
  Receipt Date: 20210805
  Transmission Date: 20211014
  Serious: Yes (Other)
  Sender: FDA-Public Use
  Company Number: CN-SLATE RUN PHARMACEUTICALS-21CN000604

PATIENT

DRUGS (8)
  1. MEROPENEM. [Concomitant]
     Active Substance: MEROPENEM
     Indication: COUGH
     Dosage: 2 GRAM, Q 8 HR
     Route: 042
  2. CEFTRIAXONE. [Concomitant]
     Active Substance: CEFTRIAXONE
     Indication: INTRACRANIAL INFECTION
     Dosage: 2 GRAM, Q 12 HR
     Dates: end: 20200526
  3. VANCOMYCIN HYDROCHLORIDE USP [Suspect]
     Active Substance: VANCOMYCIN HYDROCHLORIDE
     Indication: INTRACRANIAL INFECTION
     Dosage: 1 GRAM, Q 12 HR
     Dates: start: 20200330, end: 20200506
  4. LINEZOLID. [Suspect]
     Active Substance: LINEZOLID
     Indication: STAPHYLOCOCCAL INFECTION
     Dosage: 0.6 GRAM, Q 12 HR
     Dates: start: 20200512, end: 20200526
  5. LINEZOLID. [Suspect]
     Active Substance: LINEZOLID
     Dosage: 0.6 GRAM, Q 12 HR
     Dates: start: 20200506, end: 202005
  6. PIPERACILLIN AND TAZOBACTAM [Concomitant]
     Active Substance: PIPERACILLIN SODIUM\TAZOBACTAM SODIUM
     Indication: PNEUMONIA
     Dosage: 4.5 GRAM, Q 8 HR
     Dates: start: 20200323, end: 20200330
  7. VANCOMYCIN HYDROCHLORIDE USP [Suspect]
     Active Substance: VANCOMYCIN HYDROCHLORIDE
     Indication: STAPHYLOCOCCAL INFECTION
  8. MEROPENEM. [Concomitant]
     Active Substance: MEROPENEM
     Indication: SPUTUM ABNORMAL

REACTIONS (6)
  - White blood cell count decreased [Recovered/Resolved]
  - Drug ineffective [Recovered/Resolved]
  - CSF protein decreased [Recovered/Resolved]
  - Platelet count decreased [Recovered/Resolved]
  - Encephalomalacia [Recovered/Resolved]
  - Drug-induced liver injury [Recovered/Resolved]

NARRATIVE: CASE EVENT DATE: 20200413
